FAERS Safety Report 6283003-4 (Version None)
Quarter: 2009Q3

REPORT INFORMATION
  Report Type: 
  Country: None (occurrence: None)
  Receive Date: 20090724
  Receipt Date: 20090715
  Transmission Date: 20100115
  Serious: Yes (Other)
  Sender: FDA-Public Use
  Company Number: PHHY2009BR29586

PATIENT
  Sex: Male

DRUGS (2)
  1. RITALIN [Suspect]
     Dosage: 10 MG, UNK
     Route: 048
  2. CONCERTA [Suspect]

REACTIONS (4)
  - CHEST PAIN [None]
  - DECREASED APPETITE [None]
  - DEPRESSED MOOD [None]
  - DRUG INEFFECTIVE [None]
